FAERS Safety Report 17018155 (Version 1)
Quarter: 2019Q4

REPORT INFORMATION
  Report Type: Spontaneous
  Country: US (occurrence: US)
  Receive Date: 20191111
  Receipt Date: 20191111
  Transmission Date: 20200122
  Serious: No
  Sender: FDA-Public Use
  Company Number: US-TAKEDA-2019TUS062265

PATIENT
  Sex: Male
  Weight: 117.91 kg

DRUGS (2)
  1. VITAMIN B3 [Concomitant]
     Active Substance: NIACIN
     Dosage: UNK
     Route: 065
  2. NINLARO [Suspect]
     Active Substance: IXAZOMIB CITRATE
     Indication: PLASMA CELL MYELOMA
     Dosage: 2.3 MILLIGRAM
     Route: 048
     Dates: start: 20190716

REACTIONS (3)
  - Diarrhoea [Unknown]
  - Blood potassium decreased [Unknown]
  - Constipation [Unknown]
